FAERS Safety Report 9260787 (Version 1)
Quarter: 2013Q2

REPORT INFORMATION
  Report Type: Spontaneous
  Country: DK (occurrence: DK)
  Receive Date: 20130429
  Receipt Date: 20130429
  Transmission Date: 20140414
  Serious: Yes (Other)
  Sender: FDA-Public Use
  Company Number: DK-MYLANLABS-2013S1008509

PATIENT
  Age: 33 Year
  Sex: Male

DRUGS (4)
  1. OLANZAPINE [Suspect]
     Indication: PRODUCT USED FOR UNKNOWN INDICATION
     Dosage: DOSAGE FORM: UNSPECIFIED
  2. RISPERDAL [Suspect]
     Indication: PRODUCT USED FOR UNKNOWN INDICATION
     Dosage: DOSAGE FORM: UNSPECIFIED
  3. ZELDOX [Suspect]
     Indication: MENTAL DISORDER
     Dosage: DOSAGE FORM: UNSPECIFIED
     Dates: start: 2010
  4. ESCITALOPRAM [Concomitant]
     Indication: PRODUCT USED FOR UNKNOWN INDICATION

REACTIONS (3)
  - Erectile dysfunction [Unknown]
  - Gender identity disorder [Unknown]
  - Semen volume decreased [Unknown]
